FAERS Safety Report 13784074 (Version 2)
Quarter: 2017Q3

REPORT INFORMATION
  Report Type: Report from Study
  Country: US (occurrence: US)
  Receive Date: 20170724
  Receipt Date: 20170807
  Transmission Date: 20171127
  Serious: Yes (Hospitalization, Other)
  Sender: FDA-Public Use
  Company Number: US-BRISTOL-MYERS SQUIBB COMPANY-BMS-2017-062773

PATIENT
  Age: 61 Year
  Sex: Female
  Weight: 54.9 kg

DRUGS (2)
  1. NIVOLUMAB [Suspect]
     Active Substance: NIVOLUMAB
     Indication: CERVIX CARCINOMA
     Dosage: 52 MG, UNK
     Route: 042
     Dates: start: 20170710
  2. IPILIMUMAB [Suspect]
     Active Substance: IPILIMUMAB
     Indication: CERVIX CARCINOMA
     Dosage: 155 MG, UNK
     Route: 042
     Dates: start: 20170710

REACTIONS (1)
  - Confusional state [Recovered/Resolved]

NARRATIVE: CASE EVENT DATE: 20170711
